FAERS Safety Report 23104224 (Version 1)
Quarter: 2023Q4

REPORT INFORMATION
  Report Type: Spontaneous
  Country: US (occurrence: None)
  Receive Date: 20231024
  Receipt Date: 20231024
  Transmission Date: 20240110
  Serious: Yes (Other)
  Sender: FDA-Public Use
  Company Number: None

PATIENT
  Age: 28 Year
  Sex: Female
  Weight: 53.55 kg

DRUGS (6)
  1. BELSOMRA [Suspect]
     Active Substance: SUVOREXANT
     Indication: Insomnia
     Dosage: OTHER QUANTITY : 3 TABLET(S);?FREQUENCY : AT BEDTIME;?
     Route: 048
     Dates: start: 20231022, end: 20231023
  2. TOPAMAX [Concomitant]
     Active Substance: TOPIRAMATE
  3. LAMICTAL [Concomitant]
     Active Substance: LAMOTRIGINE
  4. DEXEDRINE [Concomitant]
     Active Substance: DEXTROAMPHETAMINE SULFATE
  5. ASPIRIN [Concomitant]
     Active Substance: ASPIRIN
  6. ADVIL [Concomitant]
     Active Substance: IBUPROFEN

REACTIONS (2)
  - Sleep paralysis [None]
  - Symptom recurrence [None]

NARRATIVE: CASE EVENT DATE: 20231023
